FAERS Safety Report 15306772 (Version 2)
Quarter: 2018Q3

REPORT INFORMATION
  Report Type: Spontaneous
  Country: TR (occurrence: TR)
  Receive Date: 20180822
  Receipt Date: 20180903
  Transmission Date: 20181010
  Serious: Yes (Other)
  Sender: FDA-Public Use
  Company Number: PHHY2018TR073034

PATIENT
  Age: 39 Year
  Sex: Male

DRUGS (1)
  1. SYSTANE (HYPROMELLOSE 2910 (4000 MPA.S)) [Suspect]
     Active Substance: HYPROMELLOSE 2910 (4000 MPA.S)
     Indication: DRY EYE
     Dosage: (4 TO 5 TIMES A DAY)
     Route: 047

REACTIONS (4)
  - Cataract [Unknown]
  - Vision blurred [Unknown]
  - Blindness [Unknown]
  - Drug ineffective [Unknown]
